FAERS Safety Report 4296089-3 (Version None)
Quarter: 2004Q1

REPORT INFORMATION
  Report Type: 
  Country: None (occurrence: None)
  Receive Date: 20040213
  Receipt Date: 20040213
  Transmission Date: 20041129
  Serious: Yes (Life-Threatening)
  Sender: FDA-Public Use
  Company Number: None

PATIENT
  Age: 50 Year
  Sex: Female
  Weight: 124.7392 kg

DRUGS (2)
  1. LASIX [Suspect]
     Indication: DIABETES MELLITUS
     Dates: start: 20040119, end: 20040123
  2. LASIX [Suspect]
     Indication: OEDEMA PERIPHERAL
     Dates: start: 20040119, end: 20040123

REACTIONS (3)
  - ERYTHEMA MULTIFORME [None]
  - MEDICATION ERROR [None]
  - STEVENS-JOHNSON SYNDROME [None]
